FAERS Safety Report 9689428 (Version 2)
Quarter: 2014Q1

REPORT INFORMATION
  Report Type: Spontaneous
  Country: US (occurrence: US)
  Receive Date: 20131114
  Receipt Date: 20140114
  Transmission Date: 20141002
  Serious: Yes (Hospitalization)
  Sender: FDA-Public Use
  Company Number: US-B.I. PHARMACEUTICALS,INC./RIDGEFIELD-2013-BI-36413BP

PATIENT
  Age: 76 Year
  Sex: Male
  Weight: 72.57 kg

DRUGS (15)
  1. PRADAXA [Suspect]
     Indication: ATRIAL FIBRILLATION
     Dosage: 300 MG
     Route: 048
     Dates: start: 20111014, end: 20111103
  2. ALLOPURINOL [Concomitant]
     Dosage: 100 MG
     Route: 048
  3. CELEXA [Concomitant]
     Dosage: 20 MG
     Route: 048
  4. COLACE [Concomitant]
     Dosage: 200 MG
     Route: 048
  5. FISH OIL [Concomitant]
     Dosage: 2000 MG
     Route: 048
  6. GABAPENTIN [Concomitant]
     Dosage: 600 MG
     Route: 048
  7. GEMFIBROZIL [Concomitant]
     Dosage: 1200 MG
     Route: 048
  8. ISOSORBIDE MONONITRATE [Concomitant]
     Dosage: 40 MG
     Route: 048
  9. LOMOTIL [Concomitant]
     Route: 048
  10. LISINOPRIL [Concomitant]
     Dosage: 20 MG
     Route: 048
  11. METFORMIN [Concomitant]
     Dosage: 50 MG
     Route: 048
  12. MULTIVITAMIN [Concomitant]
     Route: 048
  13. OMEPRAZOLE [Concomitant]
     Dosage: 20 MG
     Route: 048
  14. PLETAL [Concomitant]
     Dosage: 100 MG
     Route: 048
  15. SIMVASTATIN [Concomitant]
     Dosage: 80 MG
     Route: 048

REACTIONS (3)
  - Upper gastrointestinal haemorrhage [Unknown]
  - Anaemia [Unknown]
  - Renal failure acute [Unknown]
